FAERS Safety Report 24853535 (Version 1)
Quarter: 2025Q1

REPORT INFORMATION
  Report Type: Spontaneous
  Country: US (occurrence: None)
  Receive Date: 20250117
  Receipt Date: 20250117
  Transmission Date: 20250408
  Serious: No
  Sender: BANNER
  Company Number: US-PTA-005869

PATIENT

DRUGS (1)
  1. NAPROXEN [Suspect]
     Active Substance: NAPROXEN

REACTIONS (1)
  - Drug effect less than expected [Unknown]
